FAERS Safety Report 16679567 (Version 1)
Quarter: 2019Q3

REPORT INFORMATION
  Report Type: Spontaneous
  Country: JP (occurrence: JP)
  Receive Date: 20190807
  Receipt Date: 20190807
  Transmission Date: 20191004
  Serious: Yes (Hospitalization)
  Sender: FDA-Public Use
  Company Number: US-SLATE RUN PHARMACEUTICALS-SLTR-AE-19-76

PATIENT
  Age: 20 Year
  Sex: Male

DRUGS (2)
  1. 70436-029-80 VORICONAZOLE FOR INJECTION DRY VIAL 200 MG [Suspect]
     Active Substance: VORICONAZOLE
     Indication: BRONCHOPULMONARY ASPERGILLOSIS
  2. NATAMYCIN [Concomitant]
     Active Substance: NATAMYCIN
     Indication: KERATITIS FUNGAL
     Route: 047

REACTIONS (1)
  - Ulcerative keratitis [Recovered/Resolved]
